FAERS Safety Report 8818796 (Version 1)
Quarter: 2012Q4

REPORT INFORMATION
  Report Type: Spontaneous
  Country: US (occurrence: None)
  Receive Date: 20121005
  Receipt Date: 20121005
  Transmission Date: 20130627
  Serious: Yes (Other)
  Sender: FDA-Public Use
  Company Number: None

PATIENT
  Age: 78 Year
  Sex: Female
  Weight: 72.58 kg

DRUGS (1)
  1. METHYL PREDNISOLONE [Suspect]

REACTIONS (3)
  - Meningitis [None]
  - Brain injury [None]
  - Product contamination [None]
